FAERS Safety Report 18570446 (Version 6)
Quarter: 2021Q2

REPORT INFORMATION
  Report Type: Spontaneous
  Country: US (occurrence: US)
  Receive Date: 20201202
  Receipt Date: 20210622
  Transmission Date: 20210717
  Serious: No
  Sender: FDA-Public Use
  Company Number: US-PFIZER INC-2020260985

PATIENT
  Age: 75 Year
  Sex: Female
  Weight: 58.96 kg

DRUGS (6)
  1. DILANTIN [Suspect]
     Active Substance: PHENYTOIN
     Indication: EPILEPSY
     Dosage: 30 MG DURING THE DAY AND 100 MG AT NIGHT
  2. PHENOBARBITAL. [Concomitant]
     Active Substance: PHENOBARBITAL
     Indication: EPILEPSY
     Dosage: 60 MG
     Route: 048
  3. DILANTIN [Suspect]
     Active Substance: PHENYTOIN
     Dosage: 30 MG, DAILY
  4. DILANTIN [Suspect]
     Active Substance: PHENYTOIN
     Dosage: 30 MG (30 MG STRENGTH), 2X/DAY
     Route: 048
  5. DILANTIN [Suspect]
     Active Substance: PHENYTOIN
     Indication: SEIZURE
     Dosage: 100 MG, 1X/DAY (100 MG)
     Route: 048
  6. DILANTIN [Suspect]
     Active Substance: PHENYTOIN
     Dosage: 100 MG, DAILY

REACTIONS (3)
  - Nightmare [Unknown]
  - Memory impairment [Unknown]
  - Confusional state [Unknown]
